FAERS Safety Report 4618501-X (Version None)
Quarter: 2005Q1

REPORT INFORMATION
  Report Type: 
  Country: None (occurrence: None)
  Receive Date: 20050323
  Receipt Date: 20050301
  Transmission Date: 20050727
  Serious: Yes (Other)
  Sender: FDA-Public Use
  Company Number: EWC050342940

PATIENT
  Age: 49 Year
  Sex: Female
  Weight: 80 kg

DRUGS (3)
  1. OLANZAPINE-ORAL  (OLANZAPINE) [Suspect]
     Indication: BIPOLAR DISORDER
     Dosage: 5 MG
     Dates: start: 20041001
  2. CARBOLITHIUM (LITHIUM CARBONATE) [Concomitant]
  3. CLONAZEPAM [Concomitant]

REACTIONS (2)
  - BALANCE DISORDER [None]
  - DRUG WITHDRAWAL SYNDROME [None]
